FAERS Safety Report 6031089-4 (Version None)
Quarter: 2009Q1

REPORT INFORMATION
  Report Type: 
  Country: None (occurrence: None)
  Receive Date: 20090108
  Receipt Date: 20081208
  Transmission Date: 20090719
  Serious: No
  Sender: FDA-Public Use
  Company Number: US-BAYER-200840903NA

PATIENT
  Age: 50 Year
  Sex: Male

DRUGS (3)
  1. LEVITRA [Suspect]
     Indication: ERECTILE DYSFUNCTION
     Dosage: TOTAL DAILY DOSE: 20 MG  UNIT DOSE: 20 MG
     Route: 048
     Dates: start: 20081030
  2. VALTREX [Concomitant]
     Indication: GENITAL HERPES
  3. ANTIBIOTIC [Concomitant]
     Indication: NAIL INFECTION

REACTIONS (1)
  - GENITAL RASH [None]
